FAERS Safety Report 6752798-5 (Version None)
Quarter: 2010Q2

REPORT INFORMATION
  Report Type: 
  Country: None (occurrence: None)
  Receive Date: 20100602
  Receipt Date: 20100519
  Transmission Date: 20101027
  Serious: Yes (Death)
  Sender: FDA-Public Use
  Company Number: DE-MYLANLABS-2010S1008823

PATIENT
  Age: 82 Year
  Sex: Male

DRUGS (2)
  1. FENTANYL [Suspect]
     Indication: TUMOUR PAIN
     Dosage: THREE FENTANYL 100 MICROG/H PATCHES
     Route: 062
  2. FENTANYL [Suspect]
     Dosage: EIGHT FENTANYL 100 MCG/H PATCHES
     Route: 062

REACTIONS (2)
  - ACCIDENTAL OVERDOSE [None]
  - DRUG ADMINISTRATION ERROR [None]
